FAERS Safety Report 16822825 (Version 1)
Quarter: 2019Q3

REPORT INFORMATION
  Report Type: Report from Study
  Country: JP (occurrence: JP)
  Receive Date: 20190918
  Receipt Date: 20190918
  Transmission Date: 20191005
  Serious: Yes (Death)
  Sender: FDA-Public Use
  Company Number: JP-PFIZER INC-2019397516

PATIENT
  Age: 78 Year
  Sex: Male

DRUGS (1)
  1. VYNDAQEL [Suspect]
     Active Substance: TAFAMIDIS MEGLUMINE
     Indication: NEUROPATHY PERIPHERAL
     Dosage: 20 MG, DAILY
     Route: 048
     Dates: start: 20190325, end: 20190610

REACTIONS (1)
  - Death [Fatal]

NARRATIVE: CASE EVENT DATE: 20190625
